FAERS Safety Report 25484700 (Version 1)
Quarter: 2025Q2

REPORT INFORMATION
  Report Type: Spontaneous
  Country: US (occurrence: None)
  Receive Date: 20250627
  Receipt Date: 20250627
  Transmission Date: 20250716
  Serious: No
  Sender: FDA-CTU
  Company Number: None

PATIENT
  Age: 49 Year
  Sex: Male
  Weight: 87.75 kg

DRUGS (1)
  1. CLARITIN [Suspect]
     Active Substance: LORATADINE
     Indication: Sinusitis

REACTIONS (1)
  - Pruritus [None]

NARRATIVE: CASE EVENT DATE: 20250518
